FAERS Safety Report 5192804-5 (Version None)
Quarter: 2006Q4

REPORT INFORMATION
  Report Type: 
  Country: None (occurrence: None)
  Receive Date: 20061228
  Receipt Date: 20051103
  Transmission Date: 20070319
  Serious: No
  Sender: FDA-Public Use
  Company Number: US-GLAXOSMITHKLINE-A0580817A

PATIENT
  Age: 64 Year
  Sex: Male

DRUGS (4)
  1. FLONASE [Suspect]
     Dosage: 50MCG AS REQUIRED
     Route: 045
  2. PREVACID [Concomitant]
  3. LIPITOR [Concomitant]
  4. ASACOL [Concomitant]

REACTIONS (3)
  - BLOOD CREATINE PHOSPHOKINASE INCREASED [None]
  - MYALGIA [None]
  - NEUROPATHY PERIPHERAL [None]
